FAERS Safety Report 11989334 (Version 2)
Quarter: 2016Q1

REPORT INFORMATION
  Report Type: Spontaneous
  Country: FR (occurrence: FR)
  Receive Date: 20160202
  Receipt Date: 20160322
  Transmission Date: 20160526
  Serious: Yes (Hospitalization)
  Sender: FDA-Public Use
  Company Number: FR-GE HEALTHCARE MEDICAL DIAGNOSTICS-VISP-PR-1601S-0026

PATIENT
  Age: 66 Year
  Sex: Female

DRUGS (10)
  1. VISIPAQUE [Suspect]
     Active Substance: IODIXANOL
     Indication: THERAPEUTIC PROCEDURE
  2. ALDACTONE [Suspect]
     Active Substance: SPIRONOLACTONE
     Dosage: 25 MG
     Route: 048
     Dates: end: 20151220
  3. LEVOTHYROX [Concomitant]
     Active Substance: LEVOTHYROXINE
     Route: 048
  4. TRIMEBUTINE DEBRIDAT [Concomitant]
     Dates: end: 20151220
  5. PRAZEPAM LYSANXIA [Concomitant]
  6. DUPHALAC [Concomitant]
     Active Substance: LACTULOSE
  7. VISIPAQUE [Suspect]
     Active Substance: IODIXANOL
     Indication: ASCITES
     Dosage: DOSE NOT REPORTED
     Route: 042
     Dates: start: 20151220, end: 20151220
  8. LASILIX [Suspect]
     Active Substance: FUROSEMIDE
     Route: 048
     Dates: start: 20151220
  9. PROPRANOLOL AVLOCARDYL [Concomitant]
     Dates: end: 20151220
  10. LASILIX [Suspect]
     Active Substance: FUROSEMIDE
     Dosage: 20 MG
     Route: 048
     Dates: end: 20151219

REACTIONS (3)
  - Cryoglobulinaemia [Recovering/Resolving]
  - Purpura [Recovering/Resolving]
  - Pruritus [Recovering/Resolving]

NARRATIVE: CASE EVENT DATE: 20151223
